FAERS Safety Report 23384501 (Version 2)
Quarter: 2024Q1

REPORT INFORMATION
  Report Type: Spontaneous
  Country: DE (occurrence: DE)
  Receive Date: 20240109
  Receipt Date: 20240118
  Transmission Date: 20240409
  Serious: Yes (Life-Threatening, Other)
  Sender: FDA-Public Use
  Company Number: None

PATIENT
  Age: 38 Year
  Sex: Male
  Weight: 75 kg

DRUGS (1)
  1. RAMIPRIL [Interacting]
     Active Substance: RAMIPRIL
     Indication: Hypertension
     Dosage: 5 MILLIGRAM, 0.5 DAY, 01-0-0-1 5MG
     Route: 048
     Dates: start: 20140101

REACTIONS (4)
  - Anaphylactic shock [Recovering/Resolving]
  - Pyrexia [Recovering/Resolving]
  - Chills [Recovering/Resolving]
  - Drug-disease interaction [Unknown]

NARRATIVE: CASE EVENT DATE: 20231220
